FAERS Safety Report 5038566-3 (Version None)
Quarter: 2006Q2

REPORT INFORMATION
  Report Type: 
  Country: None (occurrence: None)
  Receive Date: 20060629
  Receipt Date: 20060620
  Transmission Date: 20061013
  Serious: Yes (Hospitalization)
  Sender: FDA-Public Use
  Company Number: US-BRISTOL-MYERS SQUIBB COMPANY-13417258

PATIENT
  Age: 53 Year
  Sex: Female
  Weight: 68 kg

DRUGS (6)
  1. ORENCIA [Suspect]
     Indication: RHEUMATOID ARTHRITIS
     Route: 042
     Dates: start: 20060505
  2. PREDNISONE TAB [Concomitant]
  3. PRILOSEC [Concomitant]
  4. QUININE SULFATE [Concomitant]
  5. PRAVACHOL [Concomitant]
  6. LORTAB [Concomitant]

REACTIONS (2)
  - HEADACHE [None]
  - HYPOAESTHESIA [None]
